FAERS Safety Report 13503290 (Version 3)
Quarter: 2017Q3

REPORT INFORMATION
  Report Type: Spontaneous
  Country: US (occurrence: US)
  Receive Date: 20170502
  Receipt Date: 20170713
  Transmission Date: 20171127
  Serious: No
  Sender: FDA-Public Use
  Company Number: US-PFIZER INC-2017188407

PATIENT
  Age: 70 Year
  Sex: Female

DRUGS (5)
  1. OCTREOTIDE. [Concomitant]
     Active Substance: OCTREOTIDE
     Dosage: UNK
  2. COUMADIN [Concomitant]
     Active Substance: WARFARIN SODIUM
     Dosage: UNK
  3. WELCHOL [Concomitant]
     Active Substance: COLESEVELAM HYDROCHLORIDE
     Dosage: UNK
  4. SUTENT [Suspect]
     Active Substance: SUNITINIB MALATE
     Indication: PANCREATIC NEUROENDOCRINE TUMOUR METASTATIC
     Dosage: 25 MG, ALTERNATE DAY, (EVERY OTHER DAY)
     Dates: start: 20170418
  5. SODIUM BICARB [Concomitant]
     Active Substance: SODIUM BICARBONATE
     Dosage: UNK

REACTIONS (4)
  - Haemoglobin decreased [Not Recovered/Not Resolved]
  - Blood glucose decreased [Unknown]
  - Neoplasm progression [Unknown]
  - Condition aggravated [Unknown]
